FAERS Safety Report 13360601 (Version 1)
Quarter: 2017Q1

REPORT INFORMATION
  Report Type: Report from Study
  Country: None (occurrence: US)
  Receive Date: 20170322
  Receipt Date: 20170322
  Transmission Date: 20170429
  Serious: Yes (Other)
  Sender: FDA-Public Use
  Company Number: US-ABBVIE-17K-163-1907011-00

PATIENT
  Sex: Female

DRUGS (1)
  1. HUMIRA [Suspect]
     Active Substance: ADALIMUMAB
     Indication: PSORIATIC ARTHROPATHY
     Route: 058

REACTIONS (10)
  - Rash papular [Unknown]
  - Mobility decreased [Unknown]
  - Cheilitis [Unknown]
  - Thyroid disorder [Unknown]
  - Eye opacity [Unknown]
  - Aphonia [Unknown]
  - Headache [Unknown]
  - Osteoarthritis [Unknown]
  - Retinal tear [Unknown]
  - Finger deformity [Unknown]
